FAERS Safety Report 4278731-6 (Version None)
Quarter: 2004Q1

REPORT INFORMATION
  Report Type: 
  Country: None (occurrence: None)
  Receive Date: 20040102
  Receipt Date: 20030908
  Transmission Date: 20041129
  Serious: No
  Sender: FDA-Public Use
  Company Number: BLOC000680

PATIENT
  Age: 50 Year
  Sex: Female

DRUGS (2)
  1. MYOBLOC [Suspect]
     Indication: PIRIFORMIS SYNDROME
     Dosage: 12,500 U INTRAMUSCULAR
     Route: 030
  2. PREDNISONE [Concomitant]

REACTIONS (1)
  - UNEXPECTED THERAPEUTIC DRUG EFFECT [None]
